FAERS Safety Report 4723521-0 (Version None)
Quarter: 2005Q3

REPORT INFORMATION
  Report Type: 
  Country: None (occurrence: None)
  Receive Date: 20050721
  Receipt Date: 20050721
  Transmission Date: 20060218
  Serious: Yes (Disabling, Other)
  Sender: FDA-Public Use
  Company Number: None

PATIENT
  Age: 60 Year
  Sex: Female
  Weight: 52.1637 kg

DRUGS (1)
  1. ACCUTANE [Suspect]
     Indication: ACNE CYSTIC
     Dosage: 40MG 2/DAY ORAL
     Route: 048

REACTIONS (9)
  - DEPRESSION [None]
  - HEADACHE [None]
  - HYPERHIDROSIS [None]
  - LIP DRY [None]
  - MEMORY IMPAIRMENT [None]
  - MENTAL DISORDER [None]
  - NERVOUS SYSTEM DISORDER [None]
  - SCAR [None]
  - SPEECH DISORDER [None]
